FAERS Safety Report 5406061-5 (Version None)
Quarter: 2007Q3

REPORT INFORMATION
  Report Type: 
  Country: None (occurrence: None)
  Receive Date: 20070806
  Receipt Date: 20070727
  Transmission Date: 20080115
  Serious: Yes (Congenital Anomaly)
  Sender: FDA-Public Use
  Company Number: B0481798A

PATIENT
  Sex: Male

DRUGS (6)
  1. COMBIVIR [Suspect]
     Dosage: 600MG PER DAY
     Dates: start: 20040130, end: 20040601
  2. NELFINAVIR [Suspect]
     Dosage: 500MG PER DAY
     Dates: start: 20040130, end: 20040601
  3. KALETRA [Suspect]
     Dosage: 600MG PER DAY
     Dates: start: 20040601
  4. CRIXIVAN [Suspect]
     Dosage: 600MG PER DAY
     Dates: start: 20040601, end: 20040720
  5. VIREAD [Suspect]
     Dosage: 300MG PER DAY
     Dates: start: 20040601
  6. TRUVADA [Suspect]
     Dosage: 300MG PER DAY
     Dates: start: 20040601, end: 20040720

REACTIONS (6)
  - ABDOMINAL DISTENSION [None]
  - CARDIAC MURMUR [None]
  - CONGENITAL ABDOMINAL HERNIA [None]
  - CONGENITAL ANOMALY [None]
  - CRYPTORCHISM [None]
  - DRUG EXPOSURE DURING PREGNANCY [None]
